FAERS Safety Report 23090847 (Version 1)
Quarter: 2023Q4

REPORT INFORMATION
  Report Type: Spontaneous
  Country: FR (occurrence: FR)
  Receive Date: 20231020
  Receipt Date: 20231020
  Transmission Date: 20240110
  Serious: Yes (Hospitalization)
  Sender: FDA-Public Use
  Company Number: FR-SUN PHARMACEUTICAL INDUSTRIES LTD-2023RR-413732

PATIENT
  Age: 43 Year
  Sex: Male

DRUGS (3)
  1. OXALIPLATIN [Suspect]
     Active Substance: OXALIPLATIN
     Indication: Colon cancer metastatic
     Dosage: 1 DOSAGE FORM, 1DOSE/1CYCLIC
     Route: 040
     Dates: start: 20230331
  2. AVASTIN [Suspect]
     Active Substance: BEVACIZUMAB
     Indication: Colon cancer metastatic
     Dosage: 1 DOSAGE FORM, 1DOSE/1CYCLIC
     Route: 040
     Dates: start: 20230502
  3. FLUOROURACIL [Suspect]
     Active Substance: FLUOROURACIL
     Indication: Colon cancer metastatic
     Dosage: 1 DOSAGE FORM, 1DOSE/1CYCLIC
     Route: 040
     Dates: start: 20230331

REACTIONS (1)
  - Acute coronary syndrome [Recovering/Resolving]

NARRATIVE: CASE EVENT DATE: 20230523
